FAERS Safety Report 10618622 (Version 1)
Quarter: 2014Q4

REPORT INFORMATION
  Report Type: Spontaneous
  Country: GB (occurrence: MW)
  Receive Date: 20141202
  Receipt Date: 20141202
  Transmission Date: 20150529
  Serious: Yes (Death, Other)
  Sender: FDA-Public Use
  Company Number: GB-BAYER-2014-172952

PATIENT
  Age: 40 Year
  Sex: Female

DRUGS (9)
  1. CIPROFLOXACIN. [Suspect]
     Active Substance: CIPROFLOXACIN
     Indication: PATHOGEN RESISTANCE
     Dosage: HIGH DOSE (NOS)
     Dates: start: 200904
  2. CIPROFLOXACIN. [Suspect]
     Active Substance: CIPROFLOXACIN
     Indication: SALMONELLA TEST POSITIVE
  3. CIPROFLOXACIN. [Suspect]
     Active Substance: CIPROFLOXACIN
     Indication: SALMONELLOSIS
     Dosage: 500 MG, BID
     Route: 048
     Dates: start: 200903
  4. CEFTRIAXONE. [Suspect]
     Active Substance: CEFTRIAXONE
     Indication: PATHOGEN RESISTANCE
     Dosage: UNK
     Dates: start: 200904
  5. CEFTRIAXONE. [Suspect]
     Active Substance: CEFTRIAXONE
     Indication: SALMONELLA TEST POSITIVE
  6. GENTAMICIN. [Suspect]
     Active Substance: GENTAMICIN
     Indication: SALMONELLOSIS
     Dosage: UNK
     Dates: start: 200904
  7. GENTAMICIN. [Suspect]
     Active Substance: GENTAMICIN
     Indication: SALMONELLA TEST POSITIVE
  8. CEFTRIAXONE. [Suspect]
     Active Substance: CEFTRIAXONE
     Indication: SALMONELLOSIS
     Dosage: 2 G, QD
     Route: 042
     Dates: start: 200903
  9. GENTAMICIN. [Suspect]
     Active Substance: GENTAMICIN
     Indication: PATHOGEN RESISTANCE

REACTIONS (4)
  - Product use issue [None]
  - Pyrexia [Fatal]
  - Pathogen resistance [None]
  - Salmonella sepsis [Fatal]

NARRATIVE: CASE EVENT DATE: 200904
